FAERS Safety Report 13286697 (Version 1)
Quarter: 2017Q1

REPORT INFORMATION
  Report Type: Report from Study
  Country: CN (occurrence: CN)
  Receive Date: 20170301
  Receipt Date: 20170301
  Transmission Date: 20170428
  Serious: Yes (Death)
  Sender: FDA-Public Use
  Company Number: CN-ROCHE-1897667

PATIENT

DRUGS (2)
  1. MYCOPHENOLATE MOFETIL. [Suspect]
     Active Substance: MYCOPHENOLATE MOFETIL
     Indication: LUPUS NEPHRITIS
     Dosage: 500 MG TABLETS TAKEN ORALLY TWICE A DAY. DOSE SPECIFIC FOR EACH ARM. DOSING STARTED AT 500 MG BID FO
     Route: 048
  2. CYCLOPHOSPHAMIDE. [Suspect]
     Active Substance: CYCLOPHOSPHAMIDE
     Indication: LUPUS NEPHRITIS
     Dosage: 0.75 G/M^2 OF BODY SURFACE AREA FOR THE FIRST MONTH, WITH SUBSEQUENT DOSES AT 0.5-1.0 G/M^2 (AS PER
     Route: 042

REACTIONS (1)
  - Death [Fatal]
